FAERS Safety Report 23280912 (Version 2)
Quarter: 2024Q1

REPORT INFORMATION
  Report Type: Spontaneous
  Country: US (occurrence: US)
  Receive Date: 20231211
  Receipt Date: 20240320
  Transmission Date: 20240410
  Serious: No
  Sender: FDA-Public Use
  Company Number: US-NOVEN PHARMACEUTICALS, INC.-2023-NOV-US000388

PATIENT
  Sex: Female

DRUGS (2)
  1. ESTRADIOL [Suspect]
     Active Substance: ESTRADIOL
     Indication: Menopausal symptoms
     Dosage: 0.05 MG, 2/WEEK (3-4 DAYS)
     Route: 062
     Dates: start: 2021
  2. ESTRADIOL [Suspect]
     Active Substance: ESTRADIOL
     Indication: Blood oestrogen normal

REACTIONS (6)
  - Product administration error [Recovered/Resolved]
  - Device physical property issue [Recovered/Resolved]
  - Product adhesion issue [Recovered/Resolved]
  - Device issue [Recovered/Resolved]
  - Device breakage [Recovered/Resolved]
  - No adverse event [Unknown]

NARRATIVE: CASE EVENT DATE: 20230101
